FAERS Safety Report 23409011 (Version 1)
Quarter: 2024Q1

REPORT INFORMATION
  Report Type: Spontaneous
  Country: US (occurrence: None)
  Receive Date: 20240115
  Receipt Date: 20240115
  Transmission Date: 20240410
  Serious: No
  Sender: FDA-Public Use
  Company Number: None

PATIENT

DRUGS (2)
  1. PHYTONADIONE [Suspect]
     Active Substance: PHYTONADIONE
  2. PHYTONADIONE [Suspect]
     Active Substance: PHYTONADIONE

REACTIONS (2)
  - Product label confusion [None]
  - Product packaging confusion [None]
